FAERS Safety Report 6905075-3 (Version None)
Quarter: 2010Q3

REPORT INFORMATION
  Report Type: 
  Country: None (occurrence: None)
  Receive Date: 20100804
  Receipt Date: 20090915
  Transmission Date: 20110219
  Serious: No
  Sender: FDA-Public Use
  Company Number: US-PFIZER INC-2009236202

PATIENT
  Sex: Female
  Weight: 90.703 kg

DRUGS (10)
  1. LYRICA [Suspect]
     Indication: TRIGEMINAL NEURALGIA
     Dosage: 100 MG, 3X/DAY
     Dates: start: 20090610, end: 20090616
  2. TYLENOL [Concomitant]
     Dosage: UNK
  3. VALSARTAN [Concomitant]
     Indication: HYPERTENSION
     Dosage: UNK
  4. NITROGLYCERIN [Concomitant]
     Dosage: UNK
  5. SYMBICORT [Concomitant]
     Dosage: UNK
  6. BUMINATE [Concomitant]
     Dosage: UNK
  7. POTASSIUM [Concomitant]
     Dosage: UNK
  8. PLAVIX [Concomitant]
     Dosage: UNK
  9. LOVASTATIN [Concomitant]
     Indication: BLOOD CHOLESTEROL INCREASED
     Dosage: UNK
  10. ZETIA [Concomitant]
     Indication: BLOOD CHOLESTEROL INCREASED
     Dosage: UNK

REACTIONS (3)
  - OEDEMA PERIPHERAL [None]
  - SKIN REACTION [None]
  - TOOTH EXTRACTION [None]
